FAERS Safety Report 9717422 (Version 2)
Quarter: 2015Q3

REPORT INFORMATION
  Report Type: Spontaneous
  Country: US (occurrence: US)
  Receive Date: 20131127
  Receipt Date: 20150803
  Transmission Date: 20151125
  Serious: No
  Sender: FDA-Public Use
  Company Number: US-GILEAD-2008-0019647

PATIENT
  Age: 69 Year
  Sex: Female
  Weight: 97.52 kg

DRUGS (10)
  1. BETAPACE [Concomitant]
     Active Substance: SOTALOL HYDROCHLORIDE
  2. METFORMIN [Concomitant]
     Active Substance: METFORMIN HYDROCHLORIDE
  3. K-DUR [Concomitant]
     Active Substance: POTASSIUM CHLORIDE
  4. GLYBURIDE. [Concomitant]
     Active Substance: GLYBURIDE
  5. LETAIRIS [Suspect]
     Active Substance: AMBRISENTAN
     Indication: PULMONARY HYPERTENSION
     Route: 048
  6. REVATIO [Concomitant]
     Active Substance: SILDENAFIL CITRATE
  7. DIOVAN HCT [Concomitant]
     Active Substance: HYDROCHLOROTHIAZIDE\VALSARTAN
  8. ATROVENT [Concomitant]
     Active Substance: IPRATROPIUM BROMIDE
  9. NEXIUM [Concomitant]
     Active Substance: ESOMEPRAZOLE MAGNESIUM
  10. ZYRTEC [Concomitant]
     Active Substance: CETIRIZINE HYDROCHLORIDE

REACTIONS (1)
  - Diarrhoea [None]

NARRATIVE: CASE EVENT DATE: 20071006
